FAERS Safety Report 10930889 (Version 1)
Quarter: 2015Q1

REPORT INFORMATION
  Report Type: Spontaneous
  Country: US (occurrence: None)
  Receive Date: 20150318
  Receipt Date: 20150318
  Transmission Date: 20150721
  Serious: Yes (Death)
  Sender: FDA-Public Use
  Company Number: None

PATIENT
  Age: 63 Year
  Sex: Female
  Weight: 46 kg

DRUGS (2)
  1. CISPLATIN. [Suspect]
     Active Substance: CISPLATIN
     Dates: end: 20150209
  2. TAXOTERE [Suspect]
     Active Substance: DOCETAXEL
     Dates: end: 20150209

REACTIONS (3)
  - Malignant neoplasm progression [None]
  - Head and neck cancer metastatic [None]
  - Pain [None]

NARRATIVE: CASE EVENT DATE: 20150302
